FAERS Safety Report 7464533-6 (Version None)
Quarter: 2011Q1

REPORT INFORMATION
  Report Type: 
  Country: None (occurrence: None)
  Receive Date: 20110302
  Receipt Date: 20101201
  Transmission Date: 20110831
  Serious: Yes (Death)
  Sender: FDA-Public Use
  Company Number: 163-21880-10120655

PATIENT
  Age: 77 Year
  Sex: Male

DRUGS (10)
  1. BISOPROLOL FUMARATE [Concomitant]
  2. LOVASTATIN [Concomitant]
  3. ISOSORBIDE MONONITRATE [Concomitant]
  4. MORPHINE [Concomitant]
  5. REVLIMID [Suspect]
     Indication: MULTIPLE MYELOMA
     Dosage: 10 MG, 1 IN 1 D, PO
     Route: 048
     Dates: start: 20091124, end: 20100514
  6. LASIX [Concomitant]
  7. DIGOXIN [Concomitant]
  8. ARIXTRA [Concomitant]
  9. DEXAMETHASONE [Concomitant]
  10. VELCADE [Concomitant]

REACTIONS (3)
  - DEATH [None]
  - MULTIPLE MYELOMA [None]
  - ALPHA 1 GLOBULIN INCREASED [None]
